FAERS Safety Report 8369999-5 (Version None)
Quarter: 2012Q1

REPORT INFORMATION
  Report Type: 
  Country: None (occurrence: None)
  Receive Date: 20120323
  Receipt Date: 20111130
  Transmission Date: 20120608
  Serious: Yes (Other)
  Sender: FDA-Public Use
  Company Number: 163-21880-11062924

PATIENT
  Age: 60 Year
  Sex: Female
  Weight: 45.3597 kg

DRUGS (5)
  1. VELCADE [Suspect]
     Indication: MULTIPLE MYELOMA
     Dosage: 1.3 MG/M2 BI-WEEKLY
     Dates: start: 20111001
  2. ZOMETA [Concomitant]
  3. REVLIMID [Suspect]
     Indication: MULTIPLE MYELOMA
     Dosage: 25 MG, DAILY FOR 14 DAYS, PO
     Route: 048
     Dates: start: 20110609, end: 20110927
  4. ASPIRIN [Concomitant]
  5. DECADRON [Concomitant]

REACTIONS (13)
  - NEUTROPHIL COUNT DECREASED [None]
  - ROSACEA [None]
  - PAIN IN EXTREMITY [None]
  - NAUSEA [None]
  - FATIGUE [None]
  - CANDIDIASIS [None]
  - HYPOAESTHESIA [None]
  - AGEUSIA [None]
  - PARAESTHESIA [None]
  - JOINT SWELLING [None]
  - PYREXIA [None]
  - CONTUSION [None]
  - CONSTIPATION [None]
